FAERS Safety Report 17031957 (Version 4)
Quarter: 2020Q2

REPORT INFORMATION
  Report Type: Spontaneous
  Country: US (occurrence: US)
  Receive Date: 20191114
  Receipt Date: 20200403
  Transmission Date: 20200713
  Serious: No
  Sender: FDA-Public Use
  Company Number: US-ACTELION-A-NJ2019-193811

PATIENT
  Age: 87 Year
  Sex: Female

DRUGS (1)
  1. OPSUMIT [Suspect]
     Active Substance: MACITENTAN
     Indication: PULMONARY ARTERIAL HYPERTENSION
     Dosage: 10 MG, QD
     Route: 048
     Dates: start: 20190425

REACTIONS (8)
  - Hypersensitivity [Not Recovered/Not Resolved]
  - Rash pruritic [Unknown]
  - Hypertension [Not Recovered/Not Resolved]
  - Rash papular [Unknown]
  - Urinary tract infection [Unknown]
  - Nasal congestion [Unknown]
  - Rash erythematous [Unknown]
  - Fungal infection [Not Recovered/Not Resolved]

NARRATIVE: CASE EVENT DATE: 202003
